FAERS Safety Report 5604607-5 (Version None)
Quarter: 2008Q1

REPORT INFORMATION
  Report Type: 
  Country: None (occurrence: None)
  Receive Date: 20080128
  Receipt Date: 20080116
  Transmission Date: 20080703
  Serious: Yes (Hospitalization)
  Sender: FDA-Public Use
  Company Number: US-ASTRAZENECA-2006UW01882

PATIENT
  Age: 17185 Day
  Sex: Female
  Weight: 107.7 kg

DRUGS (6)
  1. SEROQUEL [Suspect]
     Indication: BIPOLAR DISORDER
     Route: 048
     Dates: start: 20010817, end: 20021114
  2. RISPERDAL [Suspect]
     Dates: start: 20000503, end: 20010720
  3. ZYPREXA [Suspect]
     Dosage: 10-20 MG
     Dates: start: 19971101, end: 20020101
  4. ZYPREXA [Suspect]
     Dosage: 7.5 TO 10 MG
     Dates: start: 19981003, end: 20000623
  5. HALDOL [Concomitant]
  6. NAVANE [Concomitant]
     Dates: start: 19970101, end: 19980730

REACTIONS (12)
  - ASTHMA [None]
  - CARDIAC FAILURE CONGESTIVE [None]
  - HEADACHE [None]
  - INJECTION SITE BRUISING [None]
  - INJECTION SITE DISCOMFORT [None]
  - MYOCARDIAL INFARCTION [None]
  - NERVOUSNESS [None]
  - OBESITY [None]
  - PULMONARY OEDEMA [None]
  - TYPE 2 DIABETES MELLITUS [None]
  - URINARY INCONTINENCE [None]
  - VISION BLURRED [None]
